FAERS Safety Report 17035257 (Version 3)
Quarter: 2020Q1

REPORT INFORMATION
  Report Type: Spontaneous
  Country: US (occurrence: US)
  Receive Date: 20191115
  Receipt Date: 20200113
  Transmission Date: 20200409
  Serious: Yes (Hospitalization)
  Sender: FDA-Public Use
  Company Number: US-HORIZON-ACT-0305-2019

PATIENT
  Age: 13 Year
  Sex: Male

DRUGS (1)
  1. ACTIMMUNE [Suspect]
     Active Substance: INTERFERON GAMMA-1B
     Indication: CHRONIC GRANULOMATOUS DISEASE
     Dosage: 30?G BIW ; 50?G TIW
     Route: 058

REACTIONS (9)
  - Purulence [Unknown]
  - Abscess drainage [Unknown]
  - Pain [Unknown]
  - Abscess [Recovering/Resolving]
  - Scar [Unknown]
  - Intestinal obstruction [Unknown]
  - Bacterial test positive [Unknown]
  - Fungal test positive [Unknown]
  - Ileostomy [Unknown]

NARRATIVE: CASE EVENT DATE: 201912
